FAERS Safety Report 16884850 (Version 1)
Quarter: 2019Q4

REPORT INFORMATION
  Report Type: Spontaneous
  Country: US (occurrence: US)
  Receive Date: 20190808
  Receipt Date: 20190808
  Transmission Date: 20200122
  Serious: No
  Sender: FDA-Public Use
  Company Number: None

PATIENT
  Age: 72 Year
  Sex: Male

DRUGS (1)
  1. INLYTA [Suspect]
     Active Substance: AXITINIB
     Indication: RENAL CANCER
     Dates: start: 20190805

REACTIONS (5)
  - Pyrexia [None]
  - Headache [None]
  - Hyperhidrosis [None]
  - Paraesthesia oral [None]
  - Rhinorrhoea [None]

NARRATIVE: CASE EVENT DATE: 20190807
